FAERS Safety Report 25454102 (Version 1)
Quarter: 2025Q2

REPORT INFORMATION
  Report Type: Spontaneous
  Country: DK (occurrence: DK)
  Receive Date: 20250619
  Receipt Date: 20250619
  Transmission Date: 20250716
  Serious: Yes (Hospitalization, Other)
  Sender: ALEXION PHARMACEUTICALS
  Company Number: None

PATIENT
  Age: 30 Year
  Weight: 65 kg

DRUGS (2)
  1. ULTOMIRIS [Suspect]
     Active Substance: RAVULIZUMAB-CWVZ
     Indication: Paroxysmal nocturnal haemoglobinuria
     Route: 065
  2. TENOFOVIR DISOPROXIL [Concomitant]
     Active Substance: TENOFOVIR DISOPROXIL
     Indication: Prophylaxis against HIV infection
     Dosage: STRENGTH: 200+245 MG

REACTIONS (4)
  - Vomiting [Recovered/Resolved]
  - Disseminated gonococcal infection [Recovered/Resolved]
  - Pyrexia [Recovered/Resolved]
  - Petechiae [Recovered/Resolved]
